FAERS Safety Report 6321937-2 (Version None)
Quarter: 2009Q3

REPORT INFORMATION
  Report Type: 
  Country: None (occurrence: None)
  Receive Date: 20090824
  Receipt Date: 20090818
  Transmission Date: 20100115
  Serious: No
  Sender: FDA-Public Use
  Company Number: US-BAYER-200930245NA

PATIENT
  Sex: Female

DRUGS (1)
  1. YAZ [Suspect]
     Indication: INFECTION

REACTIONS (5)
  - DEPRESSION [None]
  - INFECTION [None]
  - VAGINITIS BACTERIAL [None]
  - VARICOSE VEINS PELVIC [None]
  - VULVOVAGINAL MYCOTIC INFECTION [None]
